FAERS Safety Report 9856094 (Version 1)
Quarter: 2014Q1

REPORT INFORMATION
  Report Type: Spontaneous
  Country: DE (occurrence: DE)
  Receive Date: 20140130
  Receipt Date: 20140130
  Transmission Date: 20141002
  Serious: Yes (Congenital Anomaly)
  Sender: FDA-Public Use
  Company Number: DE-PFIZER INC-2014021981

PATIENT
  Age: 1 Day
  Sex: Male
  Weight: 3.27 kg

DRUGS (3)
  1. SULFASALAZINE [Suspect]
     Indication: ARTHRITIS
     Dosage: 500 MG, 2X/DAY
     Route: 064
     Dates: start: 20090703, end: 20100329
  2. PREDNISOLONE [Concomitant]
     Indication: ARTHRITIS
     Dosage: 2.5 MG, 1X/DAY
     Route: 064
     Dates: start: 20090703, end: 20100329
  3. FEMIBION [Concomitant]
     Indication: PROPHYLAXIS OF NEURAL TUBE DEFECT
     Dosage: 0.4 MG, 1X/DAY
     Route: 064
     Dates: start: 20090703

REACTIONS (3)
  - Maternal exposure during pregnancy [Unknown]
  - Ureteric stenosis [Unknown]
  - Pyelocaliectasis [Recovered/Resolved]
